FAERS Safety Report 9178176 (Version 3)
Quarter: 2013Q4

REPORT INFORMATION
  Report Type: Spontaneous
  Country: FR (occurrence: FR)
  Receive Date: 20130321
  Receipt Date: 20131018
  Transmission Date: 20140711
  Serious: Yes (Hospitalization)
  Sender: FDA-Public Use
  Company Number: FR-ASTRAZENECA-2013SE16849

PATIENT
  Age: 25745 Day
  Sex: Female

DRUGS (11)
  1. INEXIUM [Suspect]
     Route: 048
  2. FOLIC ACID [Suspect]
     Route: 048
  3. IBUPROFEN [Suspect]
     Route: 048
     Dates: start: 2007
  4. FEMARA [Suspect]
     Indication: BREAST CANCER
     Route: 048
     Dates: start: 201005
  5. IMOVANE [Suspect]
     Route: 048
     Dates: start: 1990
  6. EFFERALGAN CODEINATE [Suspect]
     Route: 048
     Dates: start: 2000
  7. LIPANTHYL [Suspect]
     Route: 048
  8. TOPALGIC [Suspect]
     Route: 048
  9. FUMAFER [Suspect]
     Route: 048
  10. BRONCHODUAL [Suspect]
     Route: 055
  11. DAFALGAN [Concomitant]
     Dosage: LONG LASTING TREATMENT

REACTIONS (3)
  - Pulmonary embolism [Recovered/Resolved]
  - Pulmonary infarction [Unknown]
  - Inflammation [Unknown]
